FAERS Safety Report 7463579-1 (Version None)
Quarter: 2011Q2

REPORT INFORMATION
  Report Type: 
  Country: None (occurrence: None)
  Receive Date: 20110506
  Receipt Date: 20110503
  Transmission Date: 20111010
  Serious: Yes (Death)
  Sender: FDA-Public Use
  Company Number: US-PFIZER INC-2011095025

PATIENT
  Age: 65 Year
  Sex: Female

DRUGS (3)
  1. LYRICA [Suspect]
     Dosage: 150 MG, 2X/DAY
  2. PRISTIQ [Suspect]
     Indication: DEPRESSION
     Dosage: 50MG, UNK
  3. LYRICA [Suspect]
     Dosage: 150 MG, 1X/DAY

REACTIONS (1)
  - COMPLETED SUICIDE [None]
